FAERS Safety Report 6268155-4 (Version None)
Quarter: 2009Q3

REPORT INFORMATION
  Report Type: 
  Country: None (occurrence: None)
  Receive Date: 20090713
  Receipt Date: 20090713
  Transmission Date: 20100115
  Serious: Yes (Other)
  Sender: FDA-Public Use
  Company Number: None

PATIENT
  Sex: Female
  Weight: 63.9572 kg

DRUGS (1)
  1. DEPAKOTE [Suspect]
     Indication: DEPRESSION
     Dosage: 500MG ONCE HS PO 250 MG ONCE BID PO
     Route: 048
     Dates: start: 20080901, end: 20090101

REACTIONS (3)
  - MOOD ALTERED [None]
  - PRODUCT SUBSTITUTION ISSUE [None]
  - TREMOR [None]
